FAERS Safety Report 13331559 (Version 1)
Quarter: 2017Q1

REPORT INFORMATION
  Report Type: Spontaneous
  Country: PE (occurrence: PE)
  Receive Date: 20170313
  Receipt Date: 20170313
  Transmission Date: 20170428
  Serious: Yes (Hospitalization, Disabling, Other)
  Sender: FDA-Public Use
  Company Number: PE-PFIZER INC-2017104255

PATIENT
  Age: 84 Year
  Sex: Female

DRUGS (1)
  1. XALATAN [Suspect]
     Active Substance: LATANOPROST
     Dosage: 2 GTT, 1X/DAY (1 DROP ON EACH EYE DAILY)

REACTIONS (4)
  - Malaise [Unknown]
  - Gait disturbance [Unknown]
  - Peripheral swelling [Unknown]
  - Retinal disorder [Unknown]
